FAERS Safety Report 13857028 (Version 1)
Quarter: 2017Q3

REPORT INFORMATION
  Report Type: Spontaneous
  Country: US (occurrence: US)
  Receive Date: 20170810
  Receipt Date: 20170810
  Transmission Date: 20171127
  Serious: No
  Sender: FDA-Public Use
  Company Number: US-ROCHE-1324037

PATIENT
  Sex: Female

DRUGS (4)
  1. MOTRIN [Concomitant]
     Active Substance: IBUPROFEN
  2. TAMIFLU [Suspect]
     Active Substance: OSELTAMIVIR PHOSPHATE
     Indication: PRODUCT USED FOR UNKNOWN INDICATION
     Dosage: ONCE A DAY
     Route: 065
     Dates: start: 20131217
  3. TAMIFLU [Suspect]
     Active Substance: OSELTAMIVIR PHOSPHATE
     Dosage: 1 MORNING, 1 AT NIGHT
     Route: 065
  4. TYLENOL [Concomitant]
     Active Substance: ACETAMINOPHEN

REACTIONS (3)
  - Tongue blistering [Unknown]
  - Swollen tongue [Unknown]
  - Hypoaesthesia oral [Unknown]
